FAERS Safety Report 9826293 (Version 1)
Quarter: 2014Q1

REPORT INFORMATION
  Report Type: Spontaneous
  Country: US (occurrence: None)
  Receive Date: 20140116
  Receipt Date: 20140116
  Transmission Date: 20141002
  Serious: Yes (Other)
  Sender: FDA-Public Use
  Company Number: None

PATIENT
  Age: 51 Year
  Sex: Female
  Weight: 54.43 kg

DRUGS (3)
  1. EVISTA [Suspect]
     Indication: BREAST HYPERPLASIA
     Route: 048
     Dates: start: 20130415, end: 20130701
  2. BUPROPION HCL [Concomitant]
  3. MONTELUKAST [Concomitant]

REACTIONS (3)
  - Muscular weakness [None]
  - Pain in extremity [None]
  - Activities of daily living impaired [None]
